FAERS Safety Report 5305409-X (Version None)
Quarter: 2007Q2

REPORT INFORMATION
  Report Type: 
  Country: None (occurrence: None)
  Receive Date: 20070424
  Receipt Date: 20070413
  Transmission Date: 20071010
  Serious: Yes (Death, Hospitalization)
  Sender: FDA-Public Use
  Company Number: US-NOVOPROD-256294

PATIENT
  Age: 19 Year
  Sex: Male

DRUGS (1)
  1. NOVOSEVEN [Suspect]
     Indication: TRAUMATIC BRAIN INJURY
     Dosage: 1.2 MG, UNK

REACTIONS (1)
  - CEREBRAL INFARCTION [None]
